FAERS Safety Report 8582001-5 (Version None)
Quarter: 2012Q3

REPORT INFORMATION
  Report Type: 
  Country: None (occurrence: None)
  Receive Date: 20120809
  Receipt Date: 20120806
  Transmission Date: 20120928
  Serious: Yes (Death)
  Sender: FDA-Public Use
  Company Number: US-CELGENEUS-163-21880-12060362

PATIENT
  Sex: Male

DRUGS (10)
  1. ZOMETA [Concomitant]
     Route: 065
  2. ARANESP [Concomitant]
     Route: 065
  3. OMEPRAZOLE [Concomitant]
     Route: 065
  4. ONDANSETRON HCL [Concomitant]
     Route: 065
  5. NORVASC [Concomitant]
     Route: 065
  6. FLUCONAZOLE [Concomitant]
     Route: 065
  7. REVLIMID [Suspect]
     Indication: MULTIPLE MYELOMA
     Dosage: 25 MILLIGRAM
     Route: 048
     Dates: start: 20110211, end: 20120411
  8. HYDROCHLOROTHIAZIDE [Concomitant]
     Route: 065
  9. DILAUDID [Concomitant]
     Indication: PAIN
     Dosage: 2 MILLIGRAM
     Route: 065
     Dates: start: 20110201
  10. GABAPENTIN [Concomitant]
     Route: 065

REACTIONS (1)
  - MULTIPLE MYELOMA [None]
